FAERS Safety Report 19846531 (Version 1)
Quarter: 2021Q3

REPORT INFORMATION
  Report Type: Spontaneous
  Country: US (occurrence: US)
  Receive Date: 20210917
  Receipt Date: 20210917
  Transmission Date: 20211014
  Serious: No
  Sender: FDA-Public Use
  Company Number: US-AJANTA PHARMA USA INC.-2118496

PATIENT
  Age: 72 Year
  Sex: Female
  Weight: 70.46 kg

DRUGS (4)
  1. ROSUVASTATIN. [Concomitant]
     Active Substance: ROSUVASTATIN
  2. EVISTA [Concomitant]
     Active Substance: RALOXIFENE HYDROCHLORIDE
  3. CHOLESTYRAMINE (ANDA 211119) [Suspect]
     Active Substance: CHOLESTYRAMINE
     Indication: COLITIS
     Dates: start: 20210723
  4. TROSPIUM CHLORIDE. [Concomitant]
     Active Substance: TROSPIUM CHLORIDE

REACTIONS (7)
  - Off label use [Not Recovered/Not Resolved]
  - Foreign body in throat [Recovering/Resolving]
  - Intentional product use issue [Not Recovered/Not Resolved]
  - Product physical consistency issue [Recovering/Resolving]
  - Product use complaint [Recovering/Resolving]
  - Product substitution issue [Not Recovered/Not Resolved]
  - Choking sensation [Recovering/Resolving]

NARRATIVE: CASE EVENT DATE: 20210723
